FAERS Safety Report 7737790-6 (Version None)
Quarter: 2011Q3

REPORT INFORMATION
  Report Type: 
  Country: None (occurrence: None)
  Receive Date: 20110908
  Receipt Date: 20110825
  Transmission Date: 20111222
  Serious: Yes (Hospitalization, Other)
  Sender: FDA-Public Use
  Company Number: PHHY2011BR59444

PATIENT
  Sex: Male

DRUGS (6)
  1. MOMETASONE FUROATE [Concomitant]
     Indication: LUNG DISORDER
     Dosage: 400 UG ONCE DAILY
     Dates: start: 20110101
  2. EXFORGE [Suspect]
     Indication: HYPERTENSION
     Dosage: 1 DF, DAILY 320/10 MG
  3. SPIRIVA [Concomitant]
     Indication: LUNG DISORDER
     Dosage: 2.5 UG (ONCE DAILY), UNK
     Dates: start: 20110101
  4. APRESOLINE [Concomitant]
     Indication: BLOOD PRESSURE
  5. APRESOLINE [Concomitant]
     Indication: CARDIAC FAILURE
     Dosage: 25 MG, 8QD
     Route: 048
     Dates: start: 20110801
  6. ONBREZ [Concomitant]
     Indication: LUNG DISORDER
     Dates: start: 20110501

REACTIONS (5)
  - CARDIAC FAILURE CHRONIC [None]
  - CYSTIC FIBROSIS [None]
  - CHRONIC OBSTRUCTIVE PULMONARY DISEASE [None]
  - RENAL FAILURE CHRONIC [None]
  - HYPERTENSION [None]
